FAERS Safety Report 15114388 (Version 1)
Quarter: 2018Q3

REPORT INFORMATION
  Report Type: Spontaneous
  Country: IT (occurrence: IT)
  Receive Date: 20180706
  Receipt Date: 20180706
  Transmission Date: 20181010
  Serious: Yes (Death)
  Sender: FDA-Public Use
  Company Number: IT-ROCHE-2150459

PATIENT
  Age: 75 Year
  Sex: Male
  Weight: 65 kg

DRUGS (3)
  1. ATEZOLIZUMAB. [Suspect]
     Active Substance: ATEZOLIZUMAB
     Indication: BLADDER ADENOCARCINOMA RECURRENT
     Dosage: ON 24/MAR/2017 LAST DOSE WAS ADMINISTERED
     Route: 042
     Dates: start: 20170324
  2. EFFENTORA [Concomitant]
     Active Substance: FENTANYL CITRATE
     Indication: PAIN
     Dosage: BUCCAL TABLETS
     Route: 060
  3. MYCOSTATIN SUSPENSION [Concomitant]
     Route: 065

REACTIONS (1)
  - Respiratory failure [Fatal]

NARRATIVE: CASE EVENT DATE: 20170413
